FAERS Safety Report 24958412 (Version 1)
Quarter: 2025Q1

REPORT INFORMATION
  Report Type: Spontaneous
  Country: JP (occurrence: JP)
  Receive Date: 20250212
  Receipt Date: 20250212
  Transmission Date: 20250409
  Serious: Yes (Other)
  Sender: RANBAXY
  Company Number: JP-SUN PHARMACEUTICAL INDUSTRIES LTD-2025R1-492921

PATIENT
  Age: 59 Year
  Sex: Female

DRUGS (5)
  1. DOMPERIDONE [Suspect]
     Active Substance: DOMPERIDONE
     Indication: Nausea
     Dosage: 10 MILLIGRAM, QD
     Route: 048
  2. DOMPERIDONE [Suspect]
     Active Substance: DOMPERIDONE
     Dosage: 20 MILLIGRAM, QD
     Route: 048
  3. PRAMIPEXOLE [Suspect]
     Active Substance: PRAMIPEXOLE
     Indication: Nuchal rigidity
     Dosage: 0.125 MILLIGRAM, QD
     Route: 065
  4. PRAMIPEXOLE [Suspect]
     Active Substance: PRAMIPEXOLE
     Dosage: 0.25 MILLIGRAM, QD
     Route: 065
  5. RASAGILINE [Suspect]
     Active Substance: RASAGILINE
     Indication: Freezing phenomenon
     Dosage: 1 MILLIGRAM, QD
     Route: 048

REACTIONS (1)
  - Reversible cerebral vasoconstriction syndrome [Recovering/Resolving]
